FAERS Safety Report 9028217 (Version 1)
Quarter: 2013Q1

REPORT INFORMATION
  Report Type: Spontaneous
  Country: US (occurrence: None)
  Receive Date: 20130115
  Receipt Date: 20130115
  Transmission Date: 20140127
  Serious: Yes (Other)
  Sender: FDA-Public Use
  Company Number: None

PATIENT
  Age: 27 Year
  Sex: Male
  Weight: 73 kg

DRUGS (1)
  1. PROPECIA [Suspect]
     Route: 048
     Dates: start: 20100701, end: 20120711

REACTIONS (11)
  - Ejaculation disorder [None]
  - Erectile dysfunction [None]
  - Testicular disorder [None]
  - Testicular pain [None]
  - Insomnia [None]
  - Feeling abnormal [None]
  - Disturbance in attention [None]
  - Cognitive disorder [None]
  - Body temperature decreased [None]
  - Weight decreased [None]
  - Gynaecomastia [None]
